FAERS Safety Report 19130643 (Version 1)
Quarter: 2021Q2

REPORT INFORMATION
  Report Type: Spontaneous
  Country: FR (occurrence: FR)
  Receive Date: 20210413
  Receipt Date: 20210413
  Transmission Date: 20210717
  Serious: Yes (Hospitalization)
  Sender: FDA-Public Use
  Company Number: FR-PFIZER INC-2021357944

PATIENT
  Age: 80 Year
  Sex: Male
  Weight: 63 kg

DRUGS (4)
  1. CILASTATINE [Suspect]
     Active Substance: CILASTATIN
     Indication: ANTIBIOTIC THERAPY
     Dosage: 500 MG, 3X/DAY
     Route: 042
     Dates: start: 20210318, end: 20210323
  2. IMIPENEM [Suspect]
     Active Substance: IMIPENEM
     Indication: ANTIBIOTIC THERAPY
     Dosage: 500 MG, 3X/DAY
     Route: 042
     Dates: start: 20210318, end: 20210323
  3. LINEZOLID. [Suspect]
     Active Substance: LINEZOLID
     Indication: ANTIBIOTIC THERAPY
     Dosage: 1200 MG, 1X/DAY
     Route: 048
     Dates: start: 20210318, end: 20210322
  4. ROACTEMRA [Suspect]
     Active Substance: TOCILIZUMAB
     Indication: COVID-19
     Dosage: 500 MG, 1X/DAY
     Route: 042
     Dates: start: 20210318, end: 20210319

REACTIONS (2)
  - Off label use [Unknown]
  - Agranulocytosis [Recovered/Resolved]

NARRATIVE: CASE EVENT DATE: 20210318
